FAERS Safety Report 5962038-2 (Version None)
Quarter: 2008Q4

REPORT INFORMATION
  Report Type: 
  Country: None (occurrence: None)
  Receive Date: 20081121
  Receipt Date: 20081111
  Transmission Date: 20090506
  Serious: Yes (Hospitalization)
  Sender: FDA-Public Use
  Company Number: PHHY2008CA26892

PATIENT
  Sex: Female

DRUGS (2)
  1. TRILEPTAL [Suspect]
     Indication: AFFECTIVE DISORDER
     Dosage: 900 MG DAILY
     Route: 048
     Dates: end: 20081028
  2. LAMOTRIGINE [Concomitant]
     Indication: AFFECTIVE DISORDER
     Dosage: UNK

REACTIONS (5)
  - BREAST DISORDER [None]
  - HAEMOGLOBIN DECREASED [None]
  - HAEMORRHAGE [None]
  - MASTECTOMY [None]
  - SURGERY [None]
